FAERS Safety Report 20470312 (Version 1)
Quarter: 2022Q1

REPORT INFORMATION
  Report Type: Other
  Country: US (occurrence: None)
  Receive Date: 20220214
  Receipt Date: 20220214
  Transmission Date: 20220423
  Serious: Yes (Life-Threatening, Hospitalization, Other)
  Sender: FDA-Public Use
  Company Number: US-ROCHE-3017402

PATIENT
  Age: 44 Year
  Sex: Female

DRUGS (1)
  1. OCREVUS [Suspect]
     Active Substance: OCRELIZUMAB
     Indication: Relapsing-remitting multiple sclerosis
     Route: 042
     Dates: start: 20171208

REACTIONS (9)
  - COVID-19 [Unknown]
  - Catheter site haematoma [Not Recovered/Not Resolved]
  - Pneumonia [Unknown]
  - Acute respiratory failure [Unknown]
  - Diabetes mellitus [Unknown]
  - Aphonia [Unknown]
  - Asthenia [Unknown]
  - Pulmonary embolism [Unknown]
  - Anaemia [Unknown]

NARRATIVE: CASE EVENT DATE: 20210812
